FAERS Safety Report 21626773 (Version 5)
Quarter: 2023Q1

REPORT INFORMATION
  Report Type: Spontaneous
  Country: DE (occurrence: DE)
  Receive Date: 20221122
  Receipt Date: 20230308
  Transmission Date: 20230418
  Serious: Yes (Hospitalization, Other)
  Sender: FDA-Public Use
  Company Number: DE-SAMSUNG BIOEPIS-SB-2022-28467

PATIENT
  Age: 66 Year
  Sex: Female
  Weight: 84 kg

DRUGS (9)
  1. CARBOPLATIN [Suspect]
     Active Substance: CARBOPLATIN
     Indication: Breast cancer female
     Dosage: 655 MG, TIW (Q21 D)
     Route: 042
     Dates: start: 20220812, end: 20221217
  2. CARBOPLATIN [Suspect]
     Active Substance: CARBOPLATIN
     Dosage: 655 MG, TIW (Q21D)
     Route: 042
     Dates: start: 20220819, end: 20221102
  3. PACLITAXEL [Suspect]
     Active Substance: PACLITAXEL
     Indication: Breast cancer female
     Dosage: 156 MG, QW (80 MG/M2, Q21D)
     Route: 042
     Dates: start: 20220812, end: 20221217
  4. PACLITAXEL [Suspect]
     Active Substance: PACLITAXEL
     Dosage: 156 MG, QW (Q21D)
     Route: 042
     Dates: start: 20220819, end: 20221102
  5. PERTUZUMAB [Suspect]
     Active Substance: PERTUZUMAB
     Indication: Breast cancer female
     Dosage: (Q21D)
     Route: 042
     Dates: start: 20220812, end: 20221217
  6. PERTUZUMAB [Suspect]
     Active Substance: PERTUZUMAB
     Dosage: 420 MG, TIW (Q21D)
     Route: 042
     Dates: start: 20220819, end: 20221102
  7. PERTUZUMAB [Suspect]
     Active Substance: PERTUZUMAB
     Dosage: 420MG (Q21D)
     Route: 065
     Dates: start: 20220812, end: 20221217
  8. EUTHYROX [Concomitant]
     Active Substance: LEVOTHYROXINE SODIUM
     Indication: Hypothyroidism
     Dosage: 75 MG, QD
     Route: 048
     Dates: start: 20120630
  9. LEVOTHYROXINE SODIUM [Concomitant]
     Active Substance: LEVOTHYROXINE SODIUM
     Indication: Hypothyroidism
     Dosage: 150 UG, QD
     Route: 048
     Dates: start: 20120630

REACTIONS (10)
  - Diarrhoea [Recovered/Resolved]
  - Dehydration [Recovered/Resolved]
  - Wound [Not Recovered/Not Resolved]
  - General physical health deterioration [Recovered/Resolved]
  - Anaemia [Not Recovered/Not Resolved]
  - Paronychia [Not Recovered/Not Resolved]
  - Hepatotoxicity [Recovered/Resolved]
  - Stomatitis [Not Recovered/Not Resolved]
  - Hypokalaemia [Recovered/Resolved]
  - Polyneuropathy [Recovered/Resolved]

NARRATIVE: CASE EVENT DATE: 20221102
